FAERS Safety Report 4411333-7 (Version None)
Quarter: 2004Q3

REPORT INFORMATION
  Report Type: 
  Country: None (occurrence: None)
  Receive Date: 20040727
  Receipt Date: 20040716
  Transmission Date: 20050211
  Serious: Yes (Hospitalization)
  Sender: FDA-Public Use
  Company Number: 2004PK01113

PATIENT
  Age: 21 Year
  Sex: Female
  Weight: 79 kg

DRUGS (2)
  1. NAROPIN [Suspect]
     Indication: CAESAREAN SECTION
     Dosage: 7.5 MG/ML ONCE ED
     Route: 008
     Dates: start: 20040623, end: 20040623
  2. NAROPIN [Concomitant]

REACTIONS (2)
  - ANAESTHETIC COMPLICATION [None]
  - MONOPLEGIA [None]
